FAERS Safety Report 15443528 (Version 1)
Quarter: 2018Q3

REPORT INFORMATION
  Report Type: Spontaneous
  Country: GB (occurrence: GB)
  Receive Date: 20180928
  Receipt Date: 20180928
  Transmission Date: 20181010
  Serious: Yes (Hospitalization, Other)
  Sender: FDA-Public Use
  Company Number: GB-SA-2018SA176522

PATIENT
  Age: 48 Year
  Sex: Female

DRUGS (4)
  1. MEPACRINE HYDROCHLORIDE [Interacting]
     Active Substance: QUINACRINE HYDROCHLORIDE
     Dosage: UNK
  2. MEPACRINE HYDROCHLORIDE [Interacting]
     Active Substance: QUINACRINE HYDROCHLORIDE
     Indication: CUTANEOUS LUPUS ERYTHEMATOSUS
     Dosage: UNK
  3. CHLOROQUINE. [Suspect]
     Active Substance: CHLOROQUINE
     Indication: CUTANEOUS LUPUS ERYTHEMATOSUS
     Dosage: UNK
  4. CHLOROQUINE. [Interacting]
     Active Substance: CHLOROQUINE
     Dosage: UNK

REACTIONS (7)
  - Paraesthesia [Recovering/Resolving]
  - Myopathy [Recovering/Resolving]
  - Drug interaction [Unknown]
  - Off label use [Unknown]
  - Toxicity to various agents [Recovering/Resolving]
  - Muscular weakness [Recovered/Resolved]
  - Demyelinating polyneuropathy [Recovering/Resolving]
